FAERS Safety Report 8293896-7 (Version None)
Quarter: 2012Q2

REPORT INFORMATION
  Report Type: 
  Country: None (occurrence: None)
  Receive Date: 20120418
  Receipt Date: 20120415
  Transmission Date: 20120825
  Serious: Yes (Other)
  Sender: FDA-Public Use
  Company Number: US-PFIZER INC-2012092928

PATIENT
  Sex: Male
  Weight: 63.492 kg

DRUGS (1)
  1. VIAGRA [Suspect]
     Indication: SEXUAL DYSFUNCTION
     Dosage: 100 MG, 2X/DAY
     Route: 048
     Dates: start: 20120301

REACTIONS (3)
  - PAIN [None]
  - ERECTION INCREASED [None]
  - HYPOAESTHESIA [None]
